FAERS Safety Report 20208897 (Version 2)
Quarter: 2022Q1

REPORT INFORMATION
  Report Type: Report from Study
  Country: US (occurrence: US)
  Receive Date: 20211220
  Receipt Date: 20220222
  Transmission Date: 20220423
  Serious: Yes (Other)
  Sender: FDA-Public Use
  Company Number: US-HORIZON THERAPEUTICS-HZN-2021-007185

PATIENT

DRUGS (20)
  1. RAVICTI [Suspect]
     Active Substance: GLYCEROL PHENYLBUTYRATE
     Indication: Ornithine transcarbamoylase deficiency
     Dosage: 2.5 ML, TID (9-25ML BT)
     Route: 048
     Dates: start: 20210802
  2. RAVICTI [Suspect]
     Active Substance: GLYCEROL PHENYLBUTYRATE
     Indication: Urea cycle disorder
     Dosage: 3 ML, TID
     Route: 048
  3. SUTAB [Concomitant]
     Active Substance: MAGNESIUM SULFATE\POTASSIUM CHLORIDE\SODIUM SULFATE
     Indication: Bowel preparation
     Dosage: UNK
     Route: 065
  4. JANUVIA [Concomitant]
     Active Substance: SITAGLIPTIN PHOSPHATE
  5. FLOMAX [Concomitant]
     Active Substance: TAMSULOSIN HYDROCHLORIDE
  6. VOLTAREN ARTHRITIS PAIN [Concomitant]
     Active Substance: DICLOFENAC SODIUM
  7. SYNTHROID [Concomitant]
     Active Substance: LEVOTHYROXINE SODIUM
  8. ZOFRAN [Concomitant]
     Active Substance: ONDANSETRON HYDROCHLORIDE
  9. TUMS [Concomitant]
     Active Substance: CALCIUM CARBONATE
  10. FLUTICASONE PROPIONATE [Concomitant]
     Active Substance: FLUTICASONE PROPIONATE
  11. ROBAXIN [Concomitant]
     Active Substance: METHOCARBAMOL
  12. GLIPIZIDE [Concomitant]
     Active Substance: GLIPIZIDE
  13. VITAMIN C [Concomitant]
     Active Substance: ASCORBIC ACID
  14. FIBER [Concomitant]
     Active Substance: PSYLLIUM HUSK
  15. CLARITIN-D NOS [Concomitant]
     Active Substance: LORATADINE\PSEUDOEPHEDRINE SULFATE
  16. VITAMIN D NOS [Concomitant]
     Active Substance: VITAMIN D NOS
  17. BACTRIM DS [Concomitant]
     Active Substance: SULFAMETHOXAZOLE\TRIMETHOPRIM
  18. HYDROCHLOROTHIAZIDE [Concomitant]
     Active Substance: HYDROCHLOROTHIAZIDE
  19. CLOBETASOL EMOLLIENT [Concomitant]
  20. POTASSIUM CITRATE [Concomitant]
     Active Substance: POTASSIUM CITRATE

REACTIONS (7)
  - Deafness unilateral [Unknown]
  - Product taste abnormal [Unknown]
  - Amnesia [Unknown]
  - Hypoacusis [Unknown]
  - Pruritus [Unknown]
  - Dysstasia [Unknown]
  - Vomiting [Unknown]

NARRATIVE: CASE EVENT DATE: 20210814
